FAERS Safety Report 16069784 (Version 8)
Quarter: 2020Q4

REPORT INFORMATION
  Report Type: Report from Study
  Country: US (occurrence: US)
  Receive Date: 20190314
  Receipt Date: 20201102
  Transmission Date: 20210113
  Serious: Yes (Death, Life-Threatening, Other)
  Sender: FDA-Public Use
  Company Number: PHHY2018US201276

PATIENT
  Age: 11 Year
  Sex: Female

DRUGS (3)
  1. CYCLOPHOSPHAMIDE. [Concomitant]
     Active Substance: CYCLOPHOSPHAMIDE
     Indication: CHEMOTHERAPY
     Dosage: UNK
     Route: 065
  2. FLUDARABINE [Concomitant]
     Active Substance: FLUDARABINE PHOSPHATE
     Indication: CHEMOTHERAPY
     Dosage: UNK
     Route: 065
  3. KYMRIAH [Suspect]
     Active Substance: TISAGENLECLEUCEL
     Indication: B-CELL TYPE ACUTE LEUKAEMIA
     Dosage: UNK, ONCE/SINGLE
     Route: 041
     Dates: start: 20180522

REACTIONS (19)
  - White blood cell count decreased [Unknown]
  - Blood disorder [Unknown]
  - Trichosporon infection [Unknown]
  - Acute respiratory distress syndrome [Fatal]
  - Liver disorder [Unknown]
  - Respiratory disorder [Unknown]
  - Neutropenia [Unknown]
  - Haematocrit decreased [Recovered/Resolved]
  - Lymphocyte count decreased [Recovered/Resolved]
  - Bacterial infection [Unknown]
  - Haemoglobin decreased [Recovered/Resolved]
  - Renal disorder [Unknown]
  - Neutrophil count decreased [Unknown]
  - Platelet count decreased [Unknown]
  - Cardiovascular disorder [Unknown]
  - Staphylococcal infection [Unknown]
  - Cytopenia [Unknown]
  - Thrombocytopenia [Unknown]
  - Treatment failure [Unknown]
